FAERS Safety Report 19421955 (Version 1)
Quarter: 2021Q2

REPORT INFORMATION
  Report Type: Spontaneous
  Country: CN (occurrence: CN)
  Receive Date: 20210616
  Receipt Date: 20210616
  Transmission Date: 20210717
  Serious: Yes (Other)
  Sender: FDA-Public Use
  Company Number: CN-JNJFOC-20210630424

PATIENT

DRUGS (3)
  1. CETIRIZINE HYDROCHLORIDE. [Suspect]
     Active Substance: CETIRIZINE HYDROCHLORIDE
     Indication: OTITIS MEDIA
  2. CETIRIZINE HYDROCHLORIDE. [Suspect]
     Active Substance: CETIRIZINE HYDROCHLORIDE
     Indication: OFF LABEL USE
     Dosage: 10 MILLIGRAM, ONCE DAILY (QD)
     Route: 048
  3. AMOXICILLIN. [Concomitant]
     Active Substance: AMOXICILLIN
     Indication: PRODUCT USED FOR UNKNOWN INDICATION
     Dosage: 1 DOSAGE FORM, 3X/DAY (TID)
     Route: 048

REACTIONS (7)
  - Palpitations [Unknown]
  - Off label use [Unknown]
  - Nausea [Unknown]
  - Drug ineffective [Unknown]
  - Vomiting [Unknown]
  - Leukopenia [Unknown]
  - Hypersensitivity [Unknown]
